FAERS Safety Report 6120073-8 (Version None)
Quarter: 2009Q1

REPORT INFORMATION
  Report Type: 
  Country: None (occurrence: None)
  Receive Date: 20090311
  Receipt Date: 20090224
  Transmission Date: 20090719
  Serious: Yes (Death)
  Sender: FDA-Public Use
  Company Number: 2009175329

PATIENT
  Age: 85 Year
  Sex: Male
  Weight: 55.8 kg

DRUGS (19)
  1. FRAGMIN [Suspect]
     Indication: THROMBOSIS PROPHYLAXIS
     Dosage: 5000 IU, 1X/DAY, SUBCUTANEOUS
     Route: 058
     Dates: start: 20081118, end: 20081120
  2. IRON POLYMALTOSE (FERRIC HYDROXIDE POLYMALTOSE COMPLEX) [Suspect]
     Indication: IRON DEFICIENCY ANAEMIA
     Dosage: 500 MG, 1X/DAY, INTRAVENOUS
     Route: 042
     Dates: start: 20081119, end: 20081119
  3. NEBIVOLOL HCL [Suspect]
     Dosage: 5 MG, 1X/DAY, ORAL
     Route: 048
     Dates: start: 20081119, end: 20081120
  4. ASPIRIN [Suspect]
     Dosage: 100 MG, 1X/DAY, ORAL
     Route: 048
     Dates: end: 20081104
  5. ASPIRIN [Suspect]
     Dosage: 100 MG, 1X/DAY, ORAL
     Route: 048
     Dates: start: 20081119, end: 20081120
  6. LASIX [Suspect]
     Dosage: ORAL; 20 MG, 2X/DAY, INTRAVENOUS
     Dates: end: 20081118
  7. LASIX [Suspect]
     Dosage: ORAL; 20 MG, 2X/DAY, INTRAVENOUS
     Dates: start: 20081118, end: 20081119
  8. VALSARTAN [Suspect]
     Dosage: 80 MG, 1X/DAY, ORAL; 40 MG, 1X/DAY, ORAL; 10 MG, 1X/DAY, ORAL
     Route: 048
     Dates: start: 20081008, end: 20081001
  9. VALSARTAN [Suspect]
     Dosage: 80 MG, 1X/DAY, ORAL; 40 MG, 1X/DAY, ORAL; 10 MG, 1X/DAY, ORAL
     Route: 048
     Dates: end: 20081007
  10. VALSARTAN [Suspect]
     Dosage: 80 MG, 1X/DAY, ORAL; 40 MG, 1X/DAY, ORAL; 10 MG, 1X/DAY, ORAL
     Route: 048
     Dates: start: 20081014, end: 20081120
  11. RECORMON (ERYTHROPOIETIN HUMAN) [Concomitant]
  12. LORAZEPAM [Concomitant]
  13. CARVEDILOL [Concomitant]
  14. ACETYLCYSTEINE [Concomitant]
  15. PREDNISOLONE [Concomitant]
  16. TORSEMIDE [Concomitant]
  17. FOLIC ACID [Concomitant]
  18. NEXIUM [Concomitant]
  19. LISINOPRIL [Concomitant]

REACTIONS (18)
  - ARTERIOSCLEROSIS [None]
  - ARTERIOSCLEROSIS CORONARY ARTERY [None]
  - BRONCHOPNEUMONIA [None]
  - CARDIAC HYPERTROPHY [None]
  - CARDIOVASCULAR INSUFFICIENCY [None]
  - EMBOLISM [None]
  - EMPHYSEMA [None]
  - HEPATIC ENCEPHALOPATHY [None]
  - HEPATIC FAILURE [None]
  - HEPATIC NECROSIS [None]
  - HEPATIC SIDEROSIS [None]
  - HEPATOTOXICITY [None]
  - INTERSTITIAL LUNG DISEASE [None]
  - MYOCARDIAL FIBROSIS [None]
  - PNEUMONIA [None]
  - PROSTATE CANCER [None]
  - PURULENCE [None]
  - SCAR [None]
